FAERS Safety Report 8413450-3 (Version None)
Quarter: 2012Q2

REPORT INFORMATION
  Report Type: 
  Country: None (occurrence: None)
  Receive Date: 20120605
  Receipt Date: 20120523
  Transmission Date: 20120825
  Serious: No
  Sender: FDA-Public Use
  Company Number: US-ASTRAZENECA-2012SE33403

PATIENT
  Sex: Female

DRUGS (2)
  1. NEXIUM [Suspect]
     Indication: OESOPHAGEAL SPASM
     Route: 048
  2. NEXIUM [Suspect]
     Indication: GASTROOESOPHAGEAL REFLUX DISEASE
     Route: 048

REACTIONS (6)
  - EYE DISORDER [None]
  - INTENTIONAL DRUG MISUSE [None]
  - GASTROOESOPHAGEAL REFLUX DISEASE [None]
  - DRUG INEFFECTIVE [None]
  - IMPAIRED HEALING [None]
  - OESOPHAGEAL SPASM [None]
